FAERS Safety Report 5164844-3 (Version None)
Quarter: 2006Q4

REPORT INFORMATION
  Report Type: 
  Country: None (occurrence: None)
  Receive Date: 20061124
  Receipt Date: 20061110
  Transmission Date: 20070319
  Serious: Yes (Hospitalization, Disabling)
  Sender: FDA-Public Use
  Company Number: T200601124

PATIENT
  Age: 70 Year
  Sex: Male
  Weight: 80 kg

DRUGS (2)
  1. HEXABRIX [Suspect]
     Indication: ARTHROGRAM
     Dosage: SINGLE, INTRA-ARTICULAR
     Route: 014
     Dates: start: 20060829, end: 20060829
  2. XYLOCAINE [Suspect]
     Dosage: SINGLE,
     Dates: start: 20060829, end: 20060829

REACTIONS (7)
  - ARTHRALGIA [None]
  - ARTHRITIS [None]
  - CONDITION AGGRAVATED [None]
  - GAIT DISTURBANCE [None]
  - MOBILITY DECREASED [None]
  - MYOSITIS [None]
  - SYNOVITIS [None]
